FAERS Safety Report 12485357 (Version 3)
Quarter: 2016Q3

REPORT INFORMATION
  Report Type: Spontaneous
  Country: US (occurrence: US)
  Receive Date: 20160621
  Receipt Date: 20160909
  Transmission Date: 20161109
  Serious: Yes (Other)
  Sender: FDA-Public Use
  Company Number: US-PFIZER INC-2016305745

PATIENT
  Sex: Female

DRUGS (1)
  1. NICOTROL [Suspect]
     Active Substance: NICOTINE
     Dosage: 10 MG 168 COUNT 1 MONTH

REACTIONS (4)
  - Expired product administered [Unknown]
  - Product label issue [Unknown]
  - Stress [Unknown]
  - Lung infection [Unknown]
